FAERS Safety Report 8976250 (Version 5)
Quarter: 2013Q2

REPORT INFORMATION
  Report Type: Report from Study
  Country: DE (occurrence: DE)
  Receive Date: 20121220
  Receipt Date: 20130520
  Transmission Date: 20140414
  Serious: Yes (Life-Threatening, Hospitalization, Other)
  Sender: FDA-Public Use
  Company Number: PHHO2012DE018183

PATIENT
  Age: 56 Year
  Sex: Male
  Weight: 79 kg

DRUGS (5)
  1. AMN107 [Suspect]
     Indication: CHRONIC MYELOID LEUKAEMIA
     Dosage: 600 MG, BID
     Route: 048
     Dates: start: 20110509, end: 20121210
  2. AMN107 [Suspect]
     Dosage: 600 MG, BID
     Route: 048
     Dates: start: 20121213
  3. AMLODIPIN [Concomitant]
     Indication: HYPERTENSION
     Dosage: 5 MG, QD
     Route: 048
  4. INEGY [Concomitant]
     Indication: HYPERCHOLESTEROLAEMIA
     Dosage: 10/20 (1 X D)
  5. VELMETIA [Concomitant]
     Indication: TYPE 2 DIABETES MELLITUS
     Dosage: 50/1000 (1-0-1)

REACTIONS (1)
  - Myocardial infarction [Recovered/Resolved]
